FAERS Safety Report 16404995 (Version 3)
Quarter: 2019Q3

REPORT INFORMATION
  Report Type: Spontaneous
  Country: IL (occurrence: IL)
  Receive Date: 20190607
  Receipt Date: 20190708
  Transmission Date: 20191004
  Serious: Yes (Hospitalization)
  Sender: FDA-Public Use
  Company Number: IL-ACTELION-A-CH2019-190874

PATIENT
  Age: 72 Year
  Sex: Female

DRUGS (19)
  1. VITAMIN D [Concomitant]
     Active Substance: VITAMIN D NOS
  2. AEROVENT [Concomitant]
  3. UPTRAVI [Suspect]
     Active Substance: SELEXIPAG
     Indication: PULMONARY ARTERIAL HYPERTENSION
     Dosage: 800 MCG, BID
     Route: 048
     Dates: start: 20190319, end: 20190523
  4. OMEPRADEX [Concomitant]
     Active Substance: OMEPRAZOLE
  5. UPTRAVI [Suspect]
     Active Substance: SELEXIPAG
     Dosage: 600 MCG, BID
     Route: 048
     Dates: start: 20190523, end: 20190701
  6. LITORVA [Concomitant]
     Active Substance: ATORVASTATIN CALCIUM
  7. SILDENAFIL CITRATE. [Concomitant]
     Active Substance: SILDENAFIL CITRATE
  8. STILNOX [Concomitant]
     Active Substance: ZOLPIDEM TARTRATE
  9. GLUCOMIN [Concomitant]
     Active Substance: METFORMIN HYDROCHLORIDE
  10. CARDILOC [Concomitant]
     Active Substance: BISOPROLOL FUMARATE
  11. ROSUVASTATIN CALCIUM. [Concomitant]
     Active Substance: ROSUVASTATIN CALCIUM
  12. FUSID [Concomitant]
  13. CALCIUM [Concomitant]
     Active Substance: CALCIUM
  14. REMODULIN [Concomitant]
     Active Substance: TREPROSTINIL
  15. UPTRAVI [Suspect]
     Active Substance: SELEXIPAG
     Dosage: 1000 MCG, BID
     Route: 048
     Dates: start: 20190514
  16. ELIQUIS [Concomitant]
     Active Substance: APIXABAN
  17. PLAVIX [Concomitant]
     Active Substance: CLOPIDOGREL BISULFATE
  18. THEOTRIM [Concomitant]
  19. VENTOLIN [Concomitant]
     Active Substance: ALBUTEROL SULFATE

REACTIONS (6)
  - Headache [Recovered/Resolved]
  - Pulmonary arterial hypertension [Unknown]
  - Drug ineffective [Unknown]
  - Cardiac dysfunction [Unknown]
  - Dyspnoea at rest [Not Recovered/Not Resolved]
  - Condition aggravated [Unknown]

NARRATIVE: CASE EVENT DATE: 201905
